FAERS Safety Report 5532328-6 (Version None)
Quarter: 2007Q4

REPORT INFORMATION
  Report Type: 
  Country: None (occurrence: None)
  Receive Date: 20071203
  Receipt Date: 20071122
  Transmission Date: 20080405
  Serious: Yes (Hospitalization, Other)
  Sender: FDA-Public Use
  Company Number: DE-ELI_LILLY_AND_COMPANY-DE200711005552

PATIENT
  Age: 50 Year
  Sex: Female

DRUGS (6)
  1. CYMBALTA [Suspect]
     Indication: DEPRESSION
     Dosage: 60 MG, DAILY (1/D)
     Route: 048
     Dates: start: 20070401
  2. CYMBALTA [Suspect]
     Dosage: UNK, UNKNOWN
     Route: 048
     Dates: start: 20071119
  3. SULPIRID [Concomitant]
     Dosage: UNK, UNKNOWN
     Dates: start: 20070901
  4. ASPIRIN [Concomitant]
     Dosage: UNK, UNKNOWN
     Dates: start: 20070901
  5. SIMVABETA [Concomitant]
     Dosage: UNK, UNKNOWN
     Dates: start: 20070901
  6. OMEPRAZOLE [Concomitant]
     Dosage: UNK, UNKNOWN
     Dates: start: 20070901

REACTIONS (5)
  - BALANCE DISORDER [None]
  - DIZZINESS [None]
  - FALL [None]
  - GAIT DISTURBANCE [None]
  - TRANSIENT ISCHAEMIC ATTACK [None]
